FAERS Safety Report 9831241 (Version 2)
Quarter: 2014Q1

REPORT INFORMATION
  Report Type: Report from Study
  Country: CA (occurrence: CA)
  Receive Date: 20140121
  Receipt Date: 20140228
  Transmission Date: 20141002
  Serious: Yes (Hospitalization)
  Sender: FDA-Public Use
  Company Number: CA-ROCHE-1335892

PATIENT
  Age: 90 Year
  Sex: Female

DRUGS (1)
  1. RANIBIZUMAB [Suspect]
     Indication: AGE-RELATED MACULAR DEGENERATION
     Dosage: 10 MG/ML
     Route: 050
     Dates: start: 20131210

REACTIONS (6)
  - Fall [Unknown]
  - Head discomfort [Unknown]
  - Dizziness [Unknown]
  - Eye pain [Unknown]
  - Memory impairment [Unknown]
  - Aphasia [Unknown]
